FAERS Safety Report 16874227 (Version 2)
Quarter: 2020Q4

REPORT INFORMATION
  Report Type: Spontaneous
  Country: GB (occurrence: GB)
  Receive Date: 20191001
  Receipt Date: 20201007
  Transmission Date: 20210113
  Serious: Yes (Congenital Anomaly)
  Sender: FDA-Public Use
  Company Number: GB-MYLANLABS-2019M1091347

PATIENT
  Sex: Female
  Weight: 3.33 kg

DRUGS (1)
  1. CIPROFLOXACIN. [Suspect]
     Active Substance: CIPROFLOXACIN
     Indication: LOWER RESPIRATORY TRACT INFECTION
     Dosage: 250 MILLIGRAM, QD
     Route: 064
     Dates: start: 20070215, end: 20070219

REACTIONS (2)
  - Foetal exposure during pregnancy [Not Recovered/Not Resolved]
  - Abnormal palmar/plantar creases [Unknown]
